FAERS Safety Report 16451279 (Version 1)
Quarter: 2019Q2

REPORT INFORMATION
  Report Type: Spontaneous
  Country: US (occurrence: US)
  Receive Date: 20190619
  Receipt Date: 20190619
  Transmission Date: 20190711
  Serious: No
  Sender: FDA-Public Use
  Company Number: US-MYLANLABS-2019M1054031

PATIENT
  Age: 40 Year
  Sex: Female
  Weight: 107 kg

DRUGS (2)
  1. RISPERIDONE TABLETS, USP [Suspect]
     Active Substance: RISPERIDONE
     Indication: TACHYPHRENIA
     Dosage: UNK
     Route: 048
     Dates: start: 2012
  2. SERTRALINE [Concomitant]
     Active Substance: SERTRALINE HYDROCHLORIDE

REACTIONS (3)
  - Product availability issue [Unknown]
  - Somnolence [Recovered/Resolved]
  - Thinking abnormal [Recovered/Resolved]
